FAERS Safety Report 8169876-9 (Version None)
Quarter: 2012Q1

REPORT INFORMATION
  Report Type: 
  Country: None (occurrence: None)
  Receive Date: 20120228
  Receipt Date: 20120216
  Transmission Date: 20120608
  Serious: Yes (Other)
  Sender: FDA-Public Use
  Company Number: CA-JNJFOC-20120209100

PATIENT
  Sex: Male
  Weight: 107 kg

DRUGS (2)
  1. MOTRIN [Suspect]
     Indication: PAIN
     Dosage: 2-3 DOSES
     Route: 065
  2. REMICADE [Suspect]
     Indication: COLITIS ULCERATIVE
     Route: 042
     Dates: start: 20110127

REACTIONS (2)
  - POST-TRAUMATIC PAIN [None]
  - HAEMORRHAGE [None]
